FAERS Safety Report 13987968 (Version 5)
Quarter: 2019Q2

REPORT INFORMATION
  Report Type: Spontaneous
  Country: US (occurrence: US)
  Receive Date: 20170919
  Receipt Date: 20190617
  Transmission Date: 20190711
  Serious: Yes (Other)
  Sender: FDA-Public Use
  Company Number: US-PFIZER INC-2017404697

PATIENT
  Age: 68 Year
  Sex: Female

DRUGS (2)
  1. PREMPRO [Suspect]
     Active Substance: ESTROGENS, CONJUGATED\MEDROXYPROGESTERONE ACETATE
     Indication: MENOPAUSE
     Dosage: 1 DF, DAILY (0.3 /1.5MG, ONE A DAY)
     Route: 048
  2. ARMOUR THYROID [Concomitant]
     Active Substance: THYROID, PORCINE
     Dosage: 45 UG, UNK

REACTIONS (5)
  - Hypothyroidism [Unknown]
  - Weight increased [Unknown]
  - Rosacea [Unknown]
  - Malaise [Unknown]
  - Acne [Unknown]

NARRATIVE: CASE EVENT DATE: 2015
